FAERS Safety Report 24023374 (Version 1)
Quarter: 2024Q2

REPORT INFORMATION
  Report Type: Spontaneous
  Country: CN (occurrence: CN)
  Receive Date: 20240627
  Receipt Date: 20240627
  Transmission Date: 20240716
  Serious: No
  Sender: FDA-Public Use
  Company Number: CN-ROCHE-3460807

PATIENT
  Sex: Female

DRUGS (3)
  1. ALECENSA [Suspect]
     Active Substance: ALECTINIB HYDROCHLORIDE
     Indication: Lung neoplasm malignant
     Route: 048
  2. LORLATINIB [Concomitant]
     Active Substance: LORLATINIB
     Indication: Lung neoplasm malignant
     Dosage: ORAL LORLATINIB FOR 3 DAYS AND STOPPED FOR 1 DAY
     Route: 048
     Dates: start: 202305
  3. LORLATINIB [Concomitant]
     Active Substance: LORLATINIB
     Dosage: ORAL LORLATINIB FOR 3 DAYS AND STOPPED FOR 1 DAY
     Route: 048

REACTIONS (3)
  - Lung opacity [Not Recovered/Not Resolved]
  - Depressed level of consciousness [Recovering/Resolving]
  - Blood cholesterol increased [Recovering/Resolving]
